FAERS Safety Report 16859066 (Version 2)
Quarter: 2020Q1

REPORT INFORMATION
  Report Type: Spontaneous
  Country: US (occurrence: US)
  Receive Date: 20190926
  Receipt Date: 20200107
  Transmission Date: 20200409
  Serious: Yes (Other)
  Sender: FDA-Public Use
  Company Number: US-NOVOPROD-686633

PATIENT
  Age: 50 Year
  Sex: Male
  Weight: 88 kg

DRUGS (1)
  1. TRESIBA [Suspect]
     Active Substance: INSULIN DEGLUDEC
     Indication: TYPE 2 DIABETES MELLITUS
     Dosage: (24 IU) 24 UNITS AT 7AM
     Route: 058
     Dates: start: 20190918, end: 20190918

REACTIONS (5)
  - Confusional state [Recovered/Resolved]
  - Aggression [Recovered/Resolved]
  - Dysarthria [Recovered/Resolved]
  - Epinephrine increased [Recovered/Resolved]
  - Hallucination [Recovered/Resolved]

NARRATIVE: CASE EVENT DATE: 20190918
